FAERS Safety Report 6032603-5 (Version None)
Quarter: 2009Q1

REPORT INFORMATION
  Report Type: 
  Country: None (occurrence: None)
  Receive Date: 20090109
  Receipt Date: 20081229
  Transmission Date: 20090719
  Serious: Yes (Hospitalization)
  Sender: FDA-Public Use
  Company Number: PHHY2008DE24730

PATIENT
  Sex: Female
  Weight: 82 kg

DRUGS (13)
  1. RASILEZ [Suspect]
     Indication: HYPERTENSION
     Dosage: 300 MG/DAY
     Route: 048
     Dates: end: 20081002
  2. HEPARIN [Concomitant]
  3. HYDROCORTISON [Concomitant]
     Indication: PAIN
     Dosage: UNK
  4. VANCOMYCIN HYDROCHLORIDE [Concomitant]
     Indication: PSEUDOMEMBRANOUS COLITIS
     Dosage: UPTO 1500 MG/D
     Dates: start: 20080911
  5. DILATREND [Concomitant]
     Indication: HYPERTENSION
     Dosage: 25 MG
  6. SCOPODERM [Concomitant]
  7. DURAGESIC-100 [Concomitant]
     Dosage: 25 UG/H
  8. LEFAX [Concomitant]
     Dosage: 2-2-2
  9. NOVALGIN [Concomitant]
     Dosage: 120 DROPS/DAY
  10. LASIX [Concomitant]
  11. AMITRIPTYLINE HCL [Concomitant]
     Dosage: 25 MG/DAY
  12. VOMEX A [Concomitant]
     Dosage: UNK
  13. NEXIUM [Concomitant]
     Dosage: 40 MG, QD

REACTIONS (2)
  - PETECHIAE [None]
  - SURGERY [None]
